FAERS Safety Report 11646577 (Version 2)
Quarter: 2016Q2

REPORT INFORMATION
  Report Type: Spontaneous
  Country: US (occurrence: US)
  Receive Date: 20151020
  Receipt Date: 20160429
  Transmission Date: 20160815
  Serious: No
  Sender: FDA-Public Use
  Company Number: US-ROCHE-1622148

PATIENT
  Sex: Male
  Weight: 72.64 kg

DRUGS (9)
  1. ESBRIET [Suspect]
     Active Substance: PIRFENIDONE
     Indication: IDIOPATHIC PULMONARY FIBROSIS
     Dosage: 3 CAPSULES
     Route: 048
     Dates: start: 20150303
  2. ATORVASTATIN [Concomitant]
     Active Substance: ATORVASTATIN
     Route: 065
  3. ESBRIET [Suspect]
     Active Substance: PIRFENIDONE
     Route: 048
  4. DIGOXIN. [Concomitant]
     Active Substance: DIGOXIN
     Route: 065
  5. METOPROLOL TARTRATE. [Concomitant]
     Active Substance: METOPROLOL TARTRATE
     Route: 065
  6. DIOVAN [Concomitant]
     Active Substance: VALSARTAN
     Route: 065
  7. HYDROCHLOROTHIAZIDE. [Concomitant]
     Active Substance: HYDROCHLOROTHIAZIDE
     Route: 065
  8. COUMADIN [Concomitant]
     Active Substance: WARFARIN SODIUM
     Dosage: ALTERNATIVE DAYS ON DAY 1 1 PILL AND ON DAY 2, 1/2 PILL
     Route: 065
  9. MUCINEX SINUS (UNK INGREDIENTS) [Concomitant]
     Route: 065

REACTIONS (4)
  - Diarrhoea [Unknown]
  - Drug dose omission [Unknown]
  - Rash [Not Recovered/Not Resolved]
  - Precancerous skin lesion [Unknown]
